FAERS Safety Report 13018729 (Version 1)
Quarter: 2016Q4

REPORT INFORMATION
  Report Type: Spontaneous
  Country: FR (occurrence: FR)
  Receive Date: 20161212
  Receipt Date: 20161212
  Transmission Date: 20170207
  Serious: Yes (Hospitalization)
  Sender: FDA-Public Use
  Company Number: FR-TEVA-717009ROM

PATIENT
  Age: 64 Year
  Sex: Female

DRUGS (8)
  1. CRESTOR [Concomitant]
     Active Substance: ROSUVASTATIN CALCIUM
     Dosage: 1 DOSAGE FORMS DAILY; LONG-STANDING TREATMENT
  2. LEVOTHYROX 150 MCG [Concomitant]
     Dosage: 1 DOSAGE FORMS DAILY; LONG-STANDING TREATMENT
  3. AZILECT [Suspect]
     Active Substance: RASAGILINE MESYLATE
     Indication: PARKINSONISM
     Route: 048
     Dates: start: 20161011, end: 20161031
  4. KARDEGIC [Concomitant]
     Active Substance: ASPIRIN LYSINE
     Dosage: 1 DOSAGE FORMS DAILY; LONG-STANDING TREATMENT
  5. MIMPARA 30 MG [Concomitant]
     Active Substance: CINACALCET HYDROCHLORIDE
     Dosage: 1 DOSAGE FORMS DAILY; LONG-STANDING TREATMENT
  6. RESIKALI [Concomitant]
     Active Substance: CALCIUM POLYSTYRENE SULFONATE
     Dosage: 1 DOSAGE FORMS DAILY; LONG-STANDING TREATMENT
  7. LEXOMIL 6 MG [Concomitant]
     Dosage: 0.25 DF IN THE MORNING AND 0.5 DF IN THE EVENING,  LONG-STANDING TREATMENT
  8. UN ALFA 25 MCG [Concomitant]
     Dosage: .5 DOSAGE FORMS DAILY; LONG-STANDING TREATMENT

REACTIONS (1)
  - Rash generalised [Recovered/Resolved]

NARRATIVE: CASE EVENT DATE: 20161028
